FAERS Safety Report 5551065-5 (Version None)
Quarter: 2007Q4

REPORT INFORMATION
  Report Type: 
  Country: None (occurrence: None)
  Receive Date: 20071128
  Receipt Date: 20070222
  Transmission Date: 20080405
  Serious: Yes (Hospitalization, Other)
  Sender: FDA-Public Use
  Company Number: 2007015418

PATIENT
  Sex: Male
  Weight: 99.8 kg

DRUGS (4)
  1. LIPITOR [Suspect]
     Indication: BLOOD CHOLESTEROL INCREASED
     Dosage: 80 MG (80 MG, 1 IN 1 D)
     Dates: start: 20060601
  2. WELLBUTRIN [Concomitant]
  3. TRILEPTAL [Concomitant]
  4. TOPROL-XL [Concomitant]

REACTIONS (4)
  - FATIGUE [None]
  - LETHARGY [None]
  - MUSCLE TWITCHING [None]
  - RHABDOMYOLYSIS [None]
